FAERS Safety Report 17680451 (Version 2)
Quarter: 2020Q2

REPORT INFORMATION
  Report Type: Spontaneous
  Country: DE (occurrence: DE)
  Receive Date: 20200417
  Receipt Date: 20200430
  Transmission Date: 20200714
  Serious: Yes (Hospitalization)
  Sender: FDA-Public Use
  Company Number: DE-MYLANLABS-2020M1039912

PATIENT
  Sex: Male

DRUGS (1)
  1. FASTJEKT JUNIOR [Suspect]
     Active Substance: EPINEPHRINE HYDROCHLORIDE
     Indication: ANAPHYLACTIC SHOCK
     Dosage: UNK
     Route: 058

REACTIONS (2)
  - Device failure [Unknown]
  - Product dose omission [Unknown]
